FAERS Safety Report 4815910-0 (Version None)
Quarter: 2005Q4

REPORT INFORMATION
  Report Type: 
  Country: None (occurrence: None)
  Receive Date: 20051031
  Receipt Date: 20051021
  Transmission Date: 20060501
  Serious: Yes (Other)
  Sender: FDA-Public Use
  Company Number: 2005GB02050

PATIENT
  Age: 85 Year
  Sex: Female

DRUGS (6)
  1. ARIMIDEX [Suspect]
     Indication: BREAST CANCER
     Route: 048
     Dates: start: 20040501
  2. BISOPROLOL [Concomitant]
     Indication: HYPERTENSION
  3. LASIX [Concomitant]
  4. ASPIRIN [Concomitant]
  5. IMDUR [Concomitant]
     Dosage: 30 - 60 MG
  6. PROCHLORPERAZINE [Concomitant]
     Dosage: 5 MG UP TO THREE TIMES DAILY PRN

REACTIONS (1)
  - PLATELET COUNT INCREASED [None]
